FAERS Safety Report 9462793 (Version 4)
Quarter: 2013Q4

REPORT INFORMATION
  Report Type: Report from Study
  Country: US (occurrence: US)
  Receive Date: 20130816
  Receipt Date: 20131008
  Transmission Date: 20140711
  Serious: Yes (Death, Hospitalization)
  Sender: FDA-Public Use
  Company Number: US-ACTELION-A-US2013-86992

PATIENT
  Age: 76 Year
  Sex: Female

DRUGS (1)
  1. TRACLEER [Suspect]
     Indication: PULMONARY ARTERIAL HYPERTENSION
     Dosage: UNK
     Route: 048
     Dates: start: 20091214, end: 20130830

REACTIONS (3)
  - Death [Fatal]
  - Blood urine present [Not Recovered/Not Resolved]
  - Asthenia [Not Recovered/Not Resolved]
